FAERS Safety Report 19623959 (Version 1)
Quarter: 2021Q3

REPORT INFORMATION
  Report Type: Report from Study
  Country: CN (occurrence: CN)
  Receive Date: 20210728
  Receipt Date: 20210728
  Transmission Date: 20211014
  Serious: Yes (Hospitalization, Other)
  Sender: FDA-Public Use
  Company Number: NVSC2021CN137829

PATIENT
  Age: 67 Year
  Sex: Female

DRUGS (2)
  1. ZYKADIA [Suspect]
     Active Substance: CERITINIB
     Indication: NON-SMALL CELL LUNG CANCER
     Dosage: 450 MG, QD
     Route: 048
     Dates: start: 20200522
  2. ZYKADIA [Suspect]
     Active Substance: CERITINIB
     Dosage: 450 MG, QD
     Route: 048
     Dates: start: 20200522

REACTIONS (12)
  - Road traffic accident [Unknown]
  - Anaemia [Unknown]
  - Fibula fracture [Unknown]
  - Foot fracture [Recovering/Resolving]
  - Lung neoplasm [Unknown]
  - Skin injury [Unknown]
  - Hypoproteinaemia [Unknown]
  - Limb injury [Unknown]
  - Foot fracture [Unknown]
  - Femur fracture [Unknown]
  - Multiple fractures [Unknown]
  - Tibia fracture [Unknown]

NARRATIVE: CASE EVENT DATE: 20210603
